FAERS Safety Report 4640700-1 (Version None)
Quarter: 2005Q2

REPORT INFORMATION
  Report Type: 
  Country: None (occurrence: None)
  Receive Date: 20050419
  Receipt Date: 20050405
  Transmission Date: 20051028
  Serious: Yes (Death, Hospitalization)
  Sender: FDA-Public Use
  Company Number: CERZ-10766

PATIENT
  Age: 11 Month
  Sex: Male
  Weight: 6.85 kg

DRUGS (4)
  1. CEREZYME [Suspect]
     Indication: GAUCHER'S DISEASE
     Dosage: 120 U/KG ONCE IV
     Route: 042
     Dates: start: 20050114, end: 20050114
  2. CLONT [Concomitant]
  3. CLAFORAN [Concomitant]
  4. FLUIMUCIL [Concomitant]

REACTIONS (2)
  - GASTROINTESTINAL HAEMORRHAGE [None]
  - RESPIRATORY FAILURE [None]
